FAERS Safety Report 22605944 (Version 1)
Quarter: 2023Q2

REPORT INFORMATION
  Report Type: Spontaneous
  Country: ES (occurrence: ES)
  Receive Date: 20230615
  Receipt Date: 20230615
  Transmission Date: 20230721
  Serious: Yes (Hospitalization)
  Sender: FDA-Public Use
  Company Number: ES-SA-SAC20230615000040

PATIENT
  Age: 51 Year
  Sex: Female

DRUGS (1)
  1. DUPIXENT [Suspect]
     Active Substance: DUPILUMAB
     Indication: Asthma
     Dosage: UNK
     Dates: start: 2022

REACTIONS (11)
  - Rhinovirus infection [Recovered/Resolved]
  - Metapneumovirus infection [Recovered/Resolved]
  - Generalised oedema [Recovered/Resolved]
  - Eyelid oedema [Recovered/Resolved]
  - Oedema peripheral [Recovered/Resolved]
  - Headache [Recovered/Resolved]
  - Dizziness [Recovered/Resolved]
  - Odynophagia [Recovered/Resolved]
  - Haematoma [Recovered/Resolved]
  - Pain [Recovered/Resolved]
  - Skin discolouration [Recovered/Resolved]

NARRATIVE: CASE EVENT DATE: 20220101
